FAERS Safety Report 13971960 (Version 1)
Quarter: 2017Q3

REPORT INFORMATION
  Report Type: Spontaneous
  Country: US (occurrence: US)
  Receive Date: 20170914
  Receipt Date: 20170914
  Transmission Date: 20171128
  Serious: Yes (Hospitalization)
  Sender: FDA-Public Use
  Company Number: None

PATIENT
  Age: 77 Year
  Sex: Female
  Weight: 77 kg

DRUGS (4)
  1. CLARITHROMYCIN. [Concomitant]
     Active Substance: CLARITHROMYCIN
  2. ESCITALOPRAM [Concomitant]
     Active Substance: ESCITALOPRAM OXALATE
  3. DAPSONE. [Suspect]
     Active Substance: DAPSONE
     Indication: LYME DISEASE
     Route: 048
     Dates: start: 20170907, end: 20170913
  4. RIFAMPIN. [Concomitant]
     Active Substance: RIFAMPIN

REACTIONS (3)
  - Methaemoglobinaemia [None]
  - Chest discomfort [None]
  - Hypoxia [None]

NARRATIVE: CASE EVENT DATE: 20170913
